FAERS Safety Report 8991849 (Version 1)
Quarter: 2012Q4

REPORT INFORMATION
  Report Type: 
  Country: IT (occurrence: IT)
  Receive Date: 20121231
  Receipt Date: 20121231
  Transmission Date: 20130627
  Serious: Yes (Other)
  Sender: FDA-Public Use
  Company Number: PHHY2012IT121130

PATIENT
  Sex: Male

DRUGS (2)
  1. AMIODARONE HYDROCHLORIDE [Suspect]
     Dosage: 1 DF, UNK
     Route: 048
     Dates: start: 20111022, end: 20121021
  2. COUMADIN [Concomitant]

REACTIONS (3)
  - Ventricular extrasystoles [Unknown]
  - Syncope [Recovering/Resolving]
  - Presyncope [Unknown]
